FAERS Safety Report 6510117-3 (Version None)
Quarter: 2009Q4

REPORT INFORMATION
  Report Type: 
  Country: None (occurrence: None)
  Receive Date: 20091222
  Receipt Date: 20091218
  Transmission Date: 20100525
  Serious: Yes (Other)
  Sender: FDA-Public Use
  Company Number: A0835934A

PATIENT
  Age: 19 Year
  Sex: Male

DRUGS (6)
  1. LAMOTRIGINE [Suspect]
     Dosage: 300MG TWICE PER DAY
     Route: 048
     Dates: start: 20080101
  2. LAMICTAL [Suspect]
     Dosage: 300MG TWICE PER DAY
     Route: 048
     Dates: start: 20090701
  3. CLONIDINE [Concomitant]
  4. AMOXICILLIN [Concomitant]
  5. ACNE MEDICATION [Concomitant]
  6. KEPPRA [Concomitant]

REACTIONS (2)
  - GRAND MAL CONVULSION [None]
  - TERMINAL STATE [None]
